FAERS Safety Report 11307344 (Version 1)
Quarter: 2015Q3

REPORT INFORMATION
  Report Type: Spontaneous
  Country: US (occurrence: US)
  Receive Date: 20150723
  Receipt Date: 20150723
  Transmission Date: 20151125
  Serious: No
  Sender: FDA-Public Use
  Company Number: US-BAUSCH-SP08178

PATIENT
  Age: 60 Year
  Sex: Female
  Weight: 60.38 kg

DRUGS (6)
  1. FISH OIL [Concomitant]
     Active Substance: FISH OIL
     Indication: SUPPLEMENTATION THERAPY
  2. LASIX [Concomitant]
     Active Substance: FUROSEMIDE
     Indication: LIVER DISORDER
  3. LACTULOSE. [Concomitant]
     Active Substance: LACTULOSE
  4. MILK THISTLE [Concomitant]
     Active Substance: MILK THISTLE
  5. XIFAXAN [Suspect]
     Active Substance: RIFAXIMIN
     Indication: HEPATIC ENCEPHALOPATHY
     Route: 048
     Dates: start: 20140520
  6. ALDACTONE [Concomitant]
     Active Substance: SPIRONOLACTONE
     Indication: LIVER DISORDER

REACTIONS (3)
  - Constipation [Not Recovered/Not Resolved]
  - Increased appetite [Not Recovered/Not Resolved]
  - Weight increased [Not Recovered/Not Resolved]

NARRATIVE: CASE EVENT DATE: 20140520
